FAERS Safety Report 13331089 (Version 1)
Quarter: 2017Q1

REPORT INFORMATION
  Report Type: Spontaneous
  Country: FR (occurrence: FR)
  Receive Date: 20170314
  Receipt Date: 20170314
  Transmission Date: 20170428
  Serious: Yes (Hospitalization)
  Sender: FDA-Public Use
  Company Number: FR-ACCORD-049099

PATIENT
  Age: 61 Year
  Sex: Male

DRUGS (4)
  1. DOCETAXEL HOSPIRA [Suspect]
     Active Substance: DOCETAXEL
     Indication: LARYNGEAL CANCER RECURRENT
     Dosage: STRENGTH: 10 MG/ML, 150 MG ON DAY 3
     Route: 042
     Dates: start: 20161110, end: 20161110
  2. CISPLATINE ACCORD [Suspect]
     Active Substance: CISPLATIN
     Indication: LARYNGEAL CANCER RECURRENT
     Dosage: STRENGTH: 1 MG/ML, 40 MG ONCE DAILY FROM DAY 1 TO DAY 4
     Route: 042
     Dates: start: 20161108, end: 20161111
  3. FLUOROURACILE ACCORD [Suspect]
     Active Substance: FLUOROURACIL
     Indication: LARYNGEAL CANCER RECURRENT
     Dosage: STRENGTH : 50 MG/ML, 3000 MG ON DAY 1 AND DAY 3
     Route: 042
     Dates: start: 20161108, end: 20161110
  4. NEULASTA [Concomitant]
     Active Substance: PEGFILGRASTIM
     Dosage: ON DAY 4

REACTIONS (3)
  - Weight decreased [Recovering/Resolving]
  - Enteritis [Recovered/Resolved]
  - Diarrhoea [Recovered/Resolved]

NARRATIVE: CASE EVENT DATE: 20161114
